FAERS Safety Report 23462496 (Version 1)
Quarter: 2024Q1

REPORT INFORMATION
  Report Type: Spontaneous
  Country: US (occurrence: US)
  Receive Date: 20240131
  Receipt Date: 20240131
  Transmission Date: 20240410
  Serious: Yes (Other)
  Sender: FDA-Public Use
  Company Number: US-FreseniusKabi-FK202401261

PATIENT
  Sex: Female

DRUGS (1)
  1. OMEGAVEN [Suspect]
     Active Substance: FISH OIL
     Indication: Parenteral nutrition
     Dosage: 1.5-2GRAMS/KG/DAY

REACTIONS (2)
  - Coagulopathy [Recovering/Resolving]
  - Off label use [Unknown]
